FAERS Safety Report 10204383 (Version 1)
Quarter: 2014Q2

REPORT INFORMATION
  Report Type: Spontaneous
  Country: US (occurrence: US)
  Receive Date: 20140529
  Receipt Date: 20140529
  Transmission Date: 20141212
  Serious: Yes (Hospitalization)
  Sender: FDA-Public Use
  Company Number: US-PFIZER INC-2014141349

PATIENT
  Age: 54 Year
  Sex: Female

DRUGS (1)
  1. EXEMESTANE [Suspect]
     Indication: BREAST CANCER
     Dosage: 25 MG, DAILY

REACTIONS (8)
  - Cellulitis [Recovering/Resolving]
  - Lymphoedema [Recovering/Resolving]
  - Burning sensation [Unknown]
  - Trigeminal neuralgia [Unknown]
  - Cholelithiasis [Recovering/Resolving]
  - Pallor [Unknown]
  - Erythema [Unknown]
  - Osteopenia [Unknown]
